FAERS Safety Report 4597084-7 (Version None)
Quarter: 2005Q1

REPORT INFORMATION
  Report Type: 
  Country: None (occurrence: None)
  Receive Date: 20050302
  Receipt Date: 20050221
  Transmission Date: 20050727
  Serious: Yes (Hospitalization)
  Sender: FDA-Public Use
  Company Number: SE-MERCK-0502SWE00026

PATIENT
  Age: 76 Year
  Sex: Female

DRUGS (12)
  1. COZAAR [Suspect]
     Indication: CARDIAC FAILURE
     Route: 048
     Dates: start: 20001009, end: 20041028
  2. INSULIN, BIPHASIC ISOPHANE [INJECTION] [Concomitant]
     Route: 065
  3. INSULIN HUMAN, ISOPHANE [Concomitant]
     Route: 065
  4. FERROUS SULFATE [Concomitant]
     Route: 065
  5. ESTRIOL [Concomitant]
     Route: 065
  6. FUROSEMIDE [Concomitant]
     Route: 065
  7. NITROGLYCERIN [Concomitant]
     Route: 065
  8. ASPIRIN [Concomitant]
     Route: 065
  9. CARVEDILOL [Concomitant]
     Route: 065
  10. ATORVASTATIN CALCIUM [Concomitant]
     Route: 065
  11. CALCIUM CARBONATE AND CHOLECALCIFEROL [Concomitant]
     Route: 065
  12. ISOSORBIDE MONONITRATE [Concomitant]
     Route: 065

REACTIONS (2)
  - LIVER DISORDER [None]
  - RENAL FAILURE [None]
